FAERS Safety Report 24405021 (Version 1)
Quarter: 2024Q4

REPORT INFORMATION
  Report Type: Spontaneous
  Country: US (occurrence: None)
  Receive Date: 20241005
  Receipt Date: 20241005
  Transmission Date: 20250114
  Serious: Yes (Hospitalization)
  Sender: Public
  Company Number: None

PATIENT
  Age: 71 Year
  Sex: Female

DRUGS (15)
  1. AMBRISENTAN [Suspect]
     Active Substance: AMBRISENTAN
     Indication: Pulmonary arterial hypertension
     Dosage: FREQUENCY : DAILY;?
     Route: 048
     Dates: start: 20210729
  2. TADALAFIL [Concomitant]
  3. REMODULIN [Concomitant]
     Active Substance: TREPROSTINIL
  4. FAMOTIDINE [Concomitant]
  5. AMLODIPINE [Concomitant]
  6. SPIRONOLACTONE [Concomitant]
  7. ATORVASTATIN [Concomitant]
  8. FUROSEMIDE [Concomitant]
  9. cellcept [Concomitant]
  10. PILOCARPINE [Concomitant]
  11. PANTOPRAZOLE [Concomitant]
  12. aspirin [Concomitant]
  13. MVI-minerals [Concomitant]
  14. VITRON-C [Concomitant]
  15. MAGNESIUM [Concomitant]

REACTIONS (1)
  - Pneumonia [None]

NARRATIVE: CASE EVENT DATE: 20240927
